FAERS Safety Report 9059953 (Version 1)
Quarter: 2013Q1

REPORT INFORMATION
  Report Type: Spontaneous
  Country: CA (occurrence: CA)
  Receive Date: 20130212
  Receipt Date: 20130212
  Transmission Date: 20140127
  Serious: Yes (Death)
  Sender: FDA-Public Use
  Company Number: PHHY2013CA012755

PATIENT
  Sex: 0

DRUGS (28)
  1. GLEEVEC [Suspect]
     Dosage: 400 MG, QD
     Route: 048
  2. CYTARABINE [Suspect]
     Dosage: 40 MG, UNK
     Route: 037
  3. DOXORUBICIN HYDROCHLORIDE [Suspect]
     Dosage: 30 MG/M2, UNK
  4. METHOTREXATE [Suspect]
     Dosage: 30 MG/M2, UNK
     Route: 030
  5. METHOTREXATE [Suspect]
     Dosage: 12 MG, UNK
     Route: 037
  6. METHOTREXATE [Suspect]
     Dosage: 30 MG/M2, UNK
     Route: 042
  7. METHOTREXATE [Suspect]
     Dosage: 4000 MG/M2, UNK
     Route: 042
  8. MERCAPTOPURINE [Suspect]
     Dosage: 50 MG/M2, UNK
     Route: 048
  9. ERWINIA [Suspect]
     Dosage: UNK
     Route: 030
  10. BUSULFAN [Suspect]
     Dosage: 3.2 MG/KG, QD
  11. CYCLOPHOSPHAMIDE [Suspect]
     Dosage: 60 MG/KG, UNK
  12. DEXAMETHASONE [Suspect]
     Dosage: 9 MG/M2, BID
     Route: 048
  13. DEXAMETHASONE [Suspect]
     Dosage: 6 MG/M2, BID
  14. FLUDARABINE [Suspect]
     Dosage: 50 MG, QD
  15. FLUDARABINE [Suspect]
     Dosage: 30 MG/KG, QD
  16. HYDROCORTISONE [Suspect]
     Dosage: 15 MG, UNK
     Route: 037
  17. LEUCOVORIN [Suspect]
  18. PREDNISONE [Suspect]
     Dosage: 10 MG, 4 EVERY 1 DAY
     Route: 048
  19. RADIATION THERAPY [Suspect]
  20. VINCRISTINE SULPHATE [Suspect]
     Dosage: 2 MG, UNK
     Route: 042
  21. ALENDRONATE [Concomitant]
  22. BACTRIM [Concomitant]
  23. CALCIUM + VIT D [Concomitant]
  24. CYCLOSPORIN [Concomitant]
  25. FLUCONAZOLE [Concomitant]
  26. MABCAMPATH [Concomitant]
  27. PENTAMIDINE ISETHIONATE [Concomitant]
  28. RISEDRONATE SODIUM [Concomitant]

REACTIONS (1)
  - Venoocclusive disease [Fatal]
